FAERS Safety Report 6380585-9 (Version None)
Quarter: 2009Q3

REPORT INFORMATION
  Report Type: 
  Country: None (occurrence: None)
  Receive Date: 20090929
  Receipt Date: 20090821
  Transmission Date: 20100115
  Serious: No
  Sender: FDA-Public Use
  Company Number: US-BAYER-200931138NA

PATIENT
  Age: 42 Year
  Sex: Female

DRUGS (2)
  1. YAZ [Suspect]
     Indication: PREMENSTRUAL SYNDROME
     Dates: start: 20090501
  2. ADVIL [Concomitant]

REACTIONS (1)
  - CRYING [None]
